FAERS Safety Report 24394291 (Version 1)
Quarter: 2024Q4

REPORT INFORMATION
  Report Type: Spontaneous
  Country: CN (occurrence: CN)
  Receive Date: 20241004
  Receipt Date: 20241004
  Transmission Date: 20250114
  Serious: Yes (Hospitalization)
  Sender: ABBVIE
  Company Number: CN-ABBVIE-5945603

PATIENT
  Age: 70 Year
  Sex: Female

DRUGS (5)
  1. VENETOCLAX [Suspect]
     Active Substance: VENETOCLAX
     Indication: Myelodysplastic syndrome with excess blasts
     Dosage: 400 MILLIGRAM
     Route: 048
     Dates: start: 20240911, end: 20240911
  2. VENETOCLAX [Suspect]
     Active Substance: VENETOCLAX
     Indication: Myelodysplastic syndrome with excess blasts
     Dosage: 200 MILLIGRAM
     Route: 048
     Dates: start: 20240910, end: 20240910
  3. VENETOCLAX [Suspect]
     Active Substance: VENETOCLAX
     Indication: Myelodysplastic syndrome with excess blasts
     Dosage: 100 MILLIGRAM
     Route: 048
     Dates: start: 20240909, end: 20240909
  4. AZACITIDINE [Suspect]
     Active Substance: AZACITIDINE
     Indication: Myelodysplastic syndrome with excess blasts
     Dosage: 130 MILLIGRAM? INJECTION
     Route: 058
     Dates: start: 20240911, end: 20240917
  5. OMACETAXINE MEPESUCCINATE [Suspect]
     Active Substance: OMACETAXINE MEPESUCCINATE
     Indication: Myelodysplastic syndrome with excess blasts
     Dosage: 2 MILLIGRAM
     Route: 041
     Dates: start: 20240911, end: 20240917

REACTIONS (2)
  - Agranulocytosis [Unknown]
  - Off label use [Unknown]

NARRATIVE: CASE EVENT DATE: 20240901
